FAERS Safety Report 14193666 (Version 2)
Quarter: 2017Q4

REPORT INFORMATION
  Report Type: Report from Study
  Country: JP (occurrence: JP)
  Receive Date: 20171115
  Receipt Date: 20171207
  Transmission Date: 20180321
  Serious: Yes (Other)
  Sender: FDA-Public Use
  Company Number: JP-INCYTE CORPORATION-2014IN003643

PATIENT

DRUGS (4)
  1. EXJADE [Suspect]
     Active Substance: DEFERASIROX
     Indication: IRON OVERLOAD
     Dosage: 500 MG, UNK
     Route: 048
     Dates: end: 201411
  2. EXJADE [Suspect]
     Active Substance: DEFERASIROX
     Dosage: 500 MG, UNK
     Route: 048
  3. JAKAVI [Suspect]
     Active Substance: RUXOLITINIB
     Indication: MYELOFIBROSIS
     Dosage: 5 MG, BID
     Route: 048
     Dates: start: 20141024, end: 20141104
  4. JAKAVI [Suspect]
     Active Substance: RUXOLITINIB
     Dosage: 5 MG, QD ONLY IN THE MORNING
     Route: 048
     Dates: start: 20141105, end: 20150204

REACTIONS (3)
  - Renal impairment [Recovering/Resolving]
  - Blood creatinine increased [Recovered/Resolved]
  - Platelet count decreased [Unknown]

NARRATIVE: CASE EVENT DATE: 20141030
